FAERS Safety Report 6474892-9 (Version None)
Quarter: 2009Q4

REPORT INFORMATION
  Report Type: 
  Country: None (occurrence: None)
  Receive Date: 20091204
  Receipt Date: 20090213
  Transmission Date: 20100525
  Serious: Yes (Other)
  Sender: FDA-Public Use
  Company Number: US-ELI_LILLY_AND_COMPANY-US200902003626

PATIENT
  Age: 66 Year
  Sex: Female

DRUGS (9)
  1. FORTEO [Suspect]
     Indication: OSTEOPOROSIS
     Dosage: UNK, DAILY (1/D)
     Dates: start: 20080201
  2. MEDROL [Concomitant]
     Dosage: UNK, UNK
  3. LAMICTAL [Concomitant]
  4. VYTORIN [Concomitant]
  5. XANAX [Concomitant]
  6. ZOFRAN [Concomitant]
  7. PROTONIX [Concomitant]
  8. VITAMIN D [Concomitant]
  9. SYNTHROID [Concomitant]

REACTIONS (3)
  - CONVULSION [None]
  - LIMB OPERATION [None]
  - NECK PAIN [None]
